FAERS Safety Report 4620747-1 (Version None)
Quarter: 2005Q2

REPORT INFORMATION
  Report Type: 
  Country: None (occurrence: None)
  Receive Date: 20050321
  Receipt Date: 20040709
  Transmission Date: 20051028
  Serious: Yes (Hospitalization)
  Sender: FDA-Public Use
  Company Number: 2004-07-0378

PATIENT
  Age: 22 Year
  Sex: Male
  Weight: 69.8539 kg

DRUGS (6)
  1. PEG-INTRON [Suspect]
     Indication: HEPATITIS C
     Dosage: SUBCUTANEOUS
     Route: 058
     Dates: start: 20030901, end: 20040701
  2. RIBAVIRIN [Suspect]
     Dosage: ORAL
     Route: 048
     Dates: start: 20030901, end: 20040701
  3. PAROXETINE [Concomitant]
  4. ZIPRASIDONE [Concomitant]
  5. NEURONTIN [Concomitant]
  6. BUPRENORPHINE HCL [Concomitant]

REACTIONS (2)
  - MOOD ALTERED [None]
  - SUICIDAL IDEATION [None]
